FAERS Safety Report 18787480 (Version 1)
Quarter: 2021Q1

REPORT INFORMATION
  Report Type: Spontaneous
  Country: US (occurrence: US)
  Receive Date: 20210125
  Receipt Date: 20210125
  Transmission Date: 20210419
  Serious: Yes (Hospitalization)
  Sender: FDA-Public Use
  Company Number: None

PATIENT
  Sex: Male

DRUGS (13)
  1. PREVYMIS [Suspect]
     Active Substance: LETERMOVIR
     Route: 048
  2. ABELCET [Concomitant]
     Active Substance: AMPHOTERICIN B\DIMYRISTOYLPHOSPHATIDYLCHOLINE, DL-\DIMYRISTOYLPHOSPHATIDYLGLYCEROL, DL-
  3. ASPIRIN. [Concomitant]
     Active Substance: ASPIRIN
  4. METOPROL TAR [Concomitant]
  5. TACROLIMUS. [Concomitant]
     Active Substance: TACROLIMUS
  6. VALGANCICLOV [Concomitant]
  7. ATOVAQUONE SUS [Concomitant]
  8. NEUPOGEN [Suspect]
     Active Substance: FILGRASTIM
     Route: 058
  9. PREDNISONE. [Concomitant]
     Active Substance: PREDNISONE
  10. IPRATROPIUM/SOL ALBUTER [Concomitant]
  11. MAGNESIUM?OX [Concomitant]
  12. ALBUTEROL NEB [Concomitant]
     Active Substance: ALBUTEROL
  13. PANTOPRAZOLE [Concomitant]
     Active Substance: PANTOPRAZOLE

REACTIONS (2)
  - Red blood cell count decreased [None]
  - White blood cell count decreased [None]
